FAERS Safety Report 9117964 (Version 1)
Quarter: 2013Q1

REPORT INFORMATION
  Report Type: Spontaneous
  Country: US (occurrence: US)
  Receive Date: 20130208
  Receipt Date: 20130208
  Transmission Date: 20140127
  Serious: No
  Sender: FDA-Public Use
  Company Number: US-PFIZER INC-2013049760

PATIENT
  Age: 3 Year
  Sex: Male
  Weight: 14.97 kg

DRUGS (1)
  1. AZITHROMYCIN [Suspect]
     Dosage: UNK, 2X/DAY
     Route: 048
     Dates: start: 20130205, end: 20130205

REACTIONS (1)
  - Abdominal pain upper [Recovered/Resolved]
